FAERS Safety Report 22216221 (Version 1)
Quarter: 2023Q2

REPORT INFORMATION
  Report Type: Spontaneous
  Country: JP (occurrence: JP)
  Receive Date: 20230417
  Receipt Date: 20230417
  Transmission Date: 20230721
  Serious: Yes (Hospitalization)
  Sender: FDA-Public Use
  Company Number: JP-MTPC-MTPC2023-0009938

PATIENT
  Age: 57 Year
  Sex: Male

DRUGS (2)
  1. EDARAVONE [Suspect]
     Active Substance: EDARAVONE
     Indication: Amyotrophic lateral sclerosis
     Dosage: 60 MILLIGRAM, QD
     Route: 041
     Dates: end: 20230326
  2. RILUZOLE [Concomitant]
     Active Substance: RILUZOLE
     Indication: Amyotrophic lateral sclerosis
     Route: 048
     Dates: end: 20230326

REACTIONS (1)
  - Pneumonia aspiration [Unknown]

NARRATIVE: CASE EVENT DATE: 20230310
